FAERS Safety Report 4494043-X (Version None)
Quarter: 2004Q4

REPORT INFORMATION
  Report Type: 
  Country: None (occurrence: None)
  Receive Date: 20041102
  Receipt Date: 20041027
  Transmission Date: 20050328
  Serious: Yes (Hospitalization)
  Sender: FDA-Public Use
  Company Number: D0045055A

PATIENT
  Age: 56 Year
  Sex: Male
  Weight: 106.9582 kg

DRUGS (3)
  1. AVANDAMET [Suspect]
     Indication: DIABETES MELLITUS NON-INSULIN-DEPENDENT
     Dosage: TWICE PER DAY ORAL
     Route: 048
     Dates: start: 20040809
  2. LISINOPRIL [Concomitant]
  3. METFORMIN HCL [Concomitant]

REACTIONS (1)
  - CEREBROVASCULAR ACCIDENT [None]
